FAERS Safety Report 20708327 (Version 2)
Quarter: 2022Q2

REPORT INFORMATION
  Report Type: Spontaneous
  Country: US (occurrence: US)
  Receive Date: 20220414
  Receipt Date: 20220518
  Transmission Date: 20220721
  Serious: No
  Sender: FDA-Public Use
  Company Number: US-JNJFOC-20220406052

PATIENT
  Age: 76 Year
  Sex: Female

DRUGS (3)
  1. WOMENS ROGAINE [Suspect]
     Active Substance: MINOXIDIL
     Indication: Alopecia
     Route: 061
     Dates: start: 2022
  2. WOMENS ROGAINE [Suspect]
     Active Substance: MINOXIDIL
     Indication: Accidental exposure to product
  3. ACTONEL [Concomitant]
     Active Substance: RISEDRONATE SODIUM
     Indication: Osteopenia
     Route: 065

REACTIONS (3)
  - Eye pain [Recovered/Resolved]
  - Eye irritation [Recovered/Resolved]
  - Accidental exposure to product [Unknown]

NARRATIVE: CASE EVENT DATE: 20220101
